FAERS Safety Report 5711738-8 (Version None)
Quarter: 2008Q2

REPORT INFORMATION
  Report Type: 
  Country: None (occurrence: None)
  Receive Date: 20080416
  Receipt Date: 20080401
  Transmission Date: 20081010
  Serious: Yes (Hospitalization)
  Sender: FDA-Public Use
  Company Number: MEDI-0006723

PATIENT
  Age: 13 Month
  Sex: Male
  Weight: 8.25 kg

DRUGS (12)
  1. SYNAGIS [Suspect]
     Indication: ANTIVIRAL PROPHYLAXIS
     Dosage: 50 MG , INTRAMUSCULAR
     Route: 030
     Dates: start: 20071115, end: 20071115
  2. OXYGEN (OXYGEN) [Concomitant]
  3. PREDNISOLONE [Concomitant]
  4. MONTELUKAST SODIUM [Concomitant]
  5. ACETAMINOPHEN [Concomitant]
  6. IBUPROFEN [Concomitant]
  7. VITAMIN K (MENADIONE) [Concomitant]
  8. NYSTATIN [Concomitant]
  9. CEFOTAXIM (CEFOTAXIM SODIUM) [Concomitant]
  10. CEFUROXIME [Concomitant]
  11. EPINEPHRINE / SALBUTAMOL / NACL [Concomitant]
  12. INFUSION THERAPY (NICOTINIC ACID, ETHANOLAMINE, TRIMECAINE HYDROCHLORI [Concomitant]

REACTIONS (8)
  - BRONCHITIS CHRONIC [None]
  - DRUG INEFFECTIVE [None]
  - GASTROENTERITIS NOROVIRUS [None]
  - GASTROENTERITIS ROTAVIRUS [None]
  - GENERAL PHYSICAL HEALTH DETERIORATION [None]
  - PROTHROMBIN TIME PROLONGED [None]
  - RESPIRATORY SYNCYTIAL VIRUS INFECTION [None]
  - STAPHYLOCOCCAL INFECTION [None]
